FAERS Safety Report 9097839 (Version 1)
Quarter: 2013Q1

REPORT INFORMATION
  Report Type: Spontaneous
  Country: US (occurrence: US)
  Receive Date: 20130212
  Receipt Date: 20130212
  Transmission Date: 20140127
  Serious: No
  Sender: FDA-Public Use
  Company Number: US-BAYER-2013-018251

PATIENT
  Age: 71 Year
  Sex: Female

DRUGS (4)
  1. ALEVE CAPLET/TABLET,MIDOL EXTENDED RELIEF CAPLET [Suspect]
     Indication: BACK PAIN
     Dosage: 1 DF, QD
     Route: 048
  2. HIGH BLOOD PRESSURE MEDICATION [Concomitant]
  3. SYNTHROID [Concomitant]
  4. TRAMADOL [Concomitant]

REACTIONS (1)
  - Incorrect drug administration duration [None]
